FAERS Safety Report 5347011-X (Version None)
Quarter: 2007Q2

REPORT INFORMATION
  Report Type: 
  Country: None (occurrence: None)
  Receive Date: 20070604
  Receipt Date: 20070522
  Transmission Date: 20071010
  Serious: Yes (Hospitalization)
  Sender: FDA-Public Use
  Company Number: 2006-137371-NL

PATIENT
  Age: 84 Year
  Sex: Male

DRUGS (5)
  1. MIRTAZAPINE [Suspect]
     Indication: DEPRESSION
     Dosage: 30 MG QD ORAL
     Route: 048
     Dates: start: 20050624, end: 20050824
  2. MIRTAZAPINE [Suspect]
     Indication: TENSION
     Dosage: 30 MG QD ORAL
     Route: 048
     Dates: start: 20050624, end: 20050824
  3. EPROSARTAN MESILATE [Concomitant]
  4. VITAMIN A [Concomitant]
  5. ACETYLSALICYLIC ACID SRT [Concomitant]

REACTIONS (33)
  - ABDOMINAL PAIN [None]
  - ADVERSE DRUG REACTION [None]
  - ANGINA PECTORIS [None]
  - ANGIOPATHY [None]
  - AORTIC DISORDER [None]
  - ARTHRALGIA [None]
  - CHRONIC OBSTRUCTIVE PULMONARY DISEASE [None]
  - CONFUSIONAL STATE [None]
  - DIZZINESS [None]
  - DRUG TOXICITY [None]
  - FLATULENCE [None]
  - HALLUCINATION [None]
  - HYPERHIDROSIS [None]
  - HYPOKINESIA [None]
  - INFLUENZA [None]
  - LETHARGY [None]
  - LEUKOCYTOCLASTIC VASCULITIS [None]
  - MUSCLE INJURY [None]
  - MUSCLE SPASMS [None]
  - MYALGIA [None]
  - NAUSEA [None]
  - OEDEMA PERIPHERAL [None]
  - PAIN [None]
  - PETECHIAE [None]
  - POLLAKIURIA [None]
  - RASH [None]
  - RENAL FAILURE [None]
  - RENAL IMPAIRMENT [None]
  - SYNOVITIS [None]
  - TENSION HEADACHE [None]
  - TYPE III IMMUNE COMPLEX MEDIATED REACTION [None]
  - VIRAL INFECTION [None]
  - WEIGHT DECREASED [None]
